FAERS Safety Report 5093309-2 (Version None)
Quarter: 2006Q3

REPORT INFORMATION
  Report Type: 
  Country: None (occurrence: None)
  Receive Date: 20060828
  Receipt Date: 20060815
  Transmission Date: 20061208
  Serious: Yes (Hospitalization)
  Sender: FDA-Public Use
  Company Number: 2006081783

PATIENT
  Age: 57 Year
  Sex: Male
  Weight: 66.2 kg

DRUGS (10)
  1. SUTENT [Suspect]
     Indication: METASTATIC RENAL CELL CARCINOMA
     Dosage: 50 MG (50 MG, CYCLIC), ORAL
     Route: 048
     Dates: start: 20060330
  2. CEPHALEXIN [Concomitant]
  3. ALFUZOSIN HYDROCHLORIDE (ALFUZOSIN HYDROCHLORIDE) [Concomitant]
  4. TERAZOSIN HYDROCHLORIDE [Concomitant]
  5. DOXAZOSIN MESYLATE [Concomitant]
  6. BORRAGINOL-N (BENZOCAINE, CETRIMIDE, CINCHOCAINE HYDROCHLORIDE, DIPHEN [Concomitant]
  7. MAGNESIUM OXIDE (MAGNESIUM OXIDE) [Concomitant]
  8. BISACODYL (BISACODYL) [Concomitant]
  9. COUGH MIXTURE A (PLATYCODON GRANDIFLORUM) [Concomitant]
  10. FLAVOXATE HYDROCHLORIDE (FLAVOXATE HYDROCHLORIDE) [Concomitant]

REACTIONS (4)
  - HYPONATRAEMIA [None]
  - PERIANAL ABSCESS [None]
  - PYREXIA [None]
  - URINARY RETENTION [None]
